FAERS Safety Report 8531595-4 (Version None)
Quarter: 2012Q3

REPORT INFORMATION
  Report Type: 
  Country: None (occurrence: None)
  Receive Date: 20120723
  Receipt Date: 20120717
  Transmission Date: 20120928
  Serious: Yes (Hospitalization)
  Sender: FDA-Public Use
  Company Number: PHHY2012JP015668

PATIENT
  Age: 66 Year
  Sex: Male

DRUGS (4)
  1. AGENTS ACTING ON THE RENIN-ANGIOTENSIN SYSTEM [Concomitant]
     Route: 048
  2. RASILEZ [Suspect]
     Indication: HYPERTENSION
     Route: 048
  3. NSAID'S [Concomitant]
     Route: 048
  4. VALSARTAN [Suspect]
     Route: 048

REACTIONS (6)
  - GASTRITIS EROSIVE [None]
  - HYPERKALAEMIA [None]
  - METABOLIC ACIDOSIS [None]
  - COLONIC POLYP [None]
  - ANAEMIA [None]
  - RENAL IMPAIRMENT [None]
